FAERS Safety Report 8996499 (Version 1)
Quarter: 2013Q1

REPORT INFORMATION
  Report Type: Spontaneous
  Country: IN (occurrence: IN)
  Receive Date: 20130104
  Receipt Date: 20130104
  Transmission Date: 20140127
  Serious: Yes (Other)
  Sender: FDA-Public Use
  Company Number: IN-ACCORD-015823

PATIENT
  Age: 54 Year
  Sex: Female

DRUGS (2)
  1. PACLITAXEL [Suspect]
     Indication: BREAST CANCER METASTATIC
     Dosage: STARTED WITH 20 MG/M2 AND ESCALATED TO 60 MG/M2 STEP BY STEP.
  2. ZOLEDRONATE [Concomitant]

REACTIONS (4)
  - Liver function test abnormal [Recovering/Resolving]
  - Anaemia [Unknown]
  - Thrombophlebitis [Unknown]
  - Alopecia [Unknown]
